FAERS Safety Report 4307616-1 (Version None)
Quarter: 2004Q1

REPORT INFORMATION
  Report Type: 
  Country: None (occurrence: None)
  Receive Date: 20040226
  Receipt Date: 20040219
  Transmission Date: 20041129
  Serious: Yes (Disabling)
  Sender: FDA-Public Use
  Company Number: 2004GB00322

PATIENT
  Sex: Female

DRUGS (3)
  1. ACCOLATE [Suspect]
     Dosage: 20 MG BID PO
     Route: 048
  2. SERETIDE [Concomitant]
  3. FLUTICASONE PROPIONATE [Concomitant]

REACTIONS (1)
  - PRESBYACUSIS [None]
